FAERS Safety Report 7576395-7 (Version None)
Quarter: 2011Q2

REPORT INFORMATION
  Report Type: 
  Country: None (occurrence: None)
  Receive Date: 20110628
  Receipt Date: 20110113
  Transmission Date: 20111010
  Serious: Yes (Hospitalization, Other)
  Sender: FDA-Public Use
  Company Number: US-BAYER-201032436NA

PATIENT
  Age: 44 Year
  Sex: Female
  Weight: 99.773 kg

DRUGS (6)
  1. CLONAZEPAM [Concomitant]
  2. YAZ [Suspect]
     Indication: PREMENSTRUAL SYNDROME
  3. ALLEGRA [Concomitant]
  4. LEXAPRO [Concomitant]
  5. YAZ [Suspect]
     Indication: DYSMENORRHOEA
     Dosage: UNK
     Route: 048
     Dates: start: 20070703, end: 20070817
  6. NSAID'S [Concomitant]

REACTIONS (6)
  - DYSPNOEA [None]
  - PAIN [None]
  - PULMONARY EMBOLISM [None]
  - MUSCULOSKELETAL PAIN [None]
  - ANXIETY [None]
  - BACK PAIN [None]
